FAERS Safety Report 15569503 (Version 2)
Quarter: 2019Q2

REPORT INFORMATION
  Report Type: Report from Study
  Country: IT (occurrence: IT)
  Receive Date: 20181031
  Receipt Date: 20190401
  Transmission Date: 20190711
  Serious: Yes (Other)
  Sender: FDA-Public Use
  Company Number: IT-AUROBINDO-AUR-APL-2018-003775

PATIENT
  Age: 18 Year
  Sex: Male

DRUGS (55)
  1. METHOTREXATE. [Suspect]
     Active Substance: METHOTREXATE
     Indication: PRIMARY MEDIASTINAL LARGE B-CELL LYMPHOMA
     Dosage: 3 G/M2
     Route: 042
  2. CARBOPLATIN. [Suspect]
     Active Substance: CARBOPLATIN
     Dosage: RECEIVED TWO CYCLES OF R-ICE (RITUXIMAB IFOSFAMIDE, CARBOPLATIN, ETOPOSIDE). ()
     Route: 065
  3. ETOPOSIDE. [Suspect]
     Active Substance: ETOPOSIDE
     Dosage: RECEIVED TWO CYCLES OF R-ICE (RITUXIMAB IFOSFAMIDE, CARBOPLATIN, ETOPOSIDE). ()
     Route: 065
  4. IFOSFAMIDE. [Suspect]
     Active Substance: IFOSFAMIDE
     Dosage: RECEIVED TWO CYCLES OF R-ICE (RITUXIMAB IFOSFAMIDE, CARBOPLATIN, ETOPOSIDE). ()
     Route: 065
  5. IFOSFAMIDE. [Suspect]
     Active Substance: IFOSFAMIDE
     Dosage: 800 MG/M2 FOR 1 HOUR ON DAY 1 TO 5: COURSE AA (2 COURSES) ()
     Route: 042
  6. MABTHERA [Suspect]
     Active Substance: RITUXIMAB
     Indication: PRIMARY MEDIASTINAL LARGE B-CELL LYMPHOMA
     Dosage: 375 MG/M2, UNK
     Route: 042
  7. MABTHERA [Suspect]
     Active Substance: RITUXIMAB
     Dosage: 375 MG/M2 ON DAY 0: 2 COURSES OF COURSE AA, 3 COURSES OF COURSE BB AND 2 COURSES OF COURSE CC
     Route: 042
  8. CYTARABINE. [Suspect]
     Active Substance: CYTARABINE
     Dosage: 3 G/M2 IN TWO DOSES (DOSES ARE 12 HOURS APART) FOR 3 HOURS ON DAY 1 AND 2: 2 COURSES OF COURSE CC
     Route: 042
  9. VINCRISTINE [Suspect]
     Active Substance: VINCRISTINE
     Dosage: 1.5 MG/M2 ON DAY 1 (2 COURSES OF COURSE AA AND 3 COURSES OF COURSE BB)
     Route: 042
  10. RITUXIMAB. [Suspect]
     Active Substance: RITUXIMAB
     Indication: PRIMARY MEDIASTINAL LARGE B-CELL LYMPHOMA
     Dosage: 375 MG/M2/DAY RECEIVED ON DAY 0
  11. PREDNISOLONE. [Suspect]
     Active Substance: PREDNISOLONE
     Indication: PRIMARY MEDIASTINAL LARGE B-CELL LYMPHOMA
     Dosage: 10 MG, UNK
  12. ETOPOSIDE. [Suspect]
     Active Substance: ETOPOSIDE
     Indication: PRIMARY MEDIASTINAL LARGE B-CELL LYMPHOMA
     Dosage: 100 MG/M2, UNK
     Route: 042
  13. DEXAMETHASONE. [Suspect]
     Active Substance: DEXAMETHASONE
     Dosage: ON DAY 1 AND 2 OF PREPHASE THERAPY
     Route: 065
  14. CYTARABINE. [Suspect]
     Active Substance: CYTARABINE
     Dosage: 150 MG/M2 IN TWO DOSES (DOSES ARE 12 HOURS APART) FOR 1 HOUR ON DAY 4 AND 5: 2 COURSES OF COURSE AA
     Route: 042
  15. RITUXIMAB. [Suspect]
     Active Substance: RITUXIMAB
     Dosage: RECEIVED TWO CYCLES OF R-ICE (RITUXIMAB IFOSFAMIDE, CARBOPLATIN, ETOPOSIDE). ()
     Route: 042
  16. IFOSFAMIDE. [Suspect]
     Active Substance: IFOSFAMIDE
     Indication: PRIMARY MEDIASTINAL LARGE B-CELL LYMPHOMA
     Dosage: 800 MG/M2, UNK
     Route: 042
  17. DEXAMETHASONE. [Suspect]
     Active Substance: DEXAMETHASONE
     Indication: PRIMARY MEDIASTINAL LARGE B-CELL LYMPHOMA
     Dosage: 5 MG/M2 ON DAY 1 AND 2
  18. VINCRISTINE [Suspect]
     Active Substance: VINCRISTINE
     Dosage: 1.5 MG/M2 ON DAY 1 (2 COURSES OF COURSE AA AND 3 COURSES OF COURSE BB) ()
     Route: 042
  19. CYCLOPHOSPHAMIDE. [Suspect]
     Active Substance: CYCLOPHOSPHAMIDE
     Dosage: 200 MG/M2/DAY FOR 1 HOUR ON DAY 1 TO 5: 3 COURSES OF COURSE BB ()
     Route: 042
  20. CYCLOPHOSPHAMIDE. [Suspect]
     Active Substance: CYCLOPHOSPHAMIDE
     Dosage: ON DAY 1 AND 2 OF PREPHASE ()
     Route: 042
  21. VINDESINE [Suspect]
     Active Substance: VINDESINE
     Indication: PRIMARY MEDIASTINAL LARGE B-CELL LYMPHOMA
     Dosage: 3 MG/M2 FOR 3 HOURS RECEIVED ON DAY 1
  22. DOXORUBICIN [Suspect]
     Active Substance: DOXORUBICIN
     Dosage: 30 MG/M2 DAILY FOR 4 HOURS ON DAY 4 AND 5 (3 COURSES OF COURSE BB) ()
     Route: 042
  23. CYTARABINE. [Suspect]
     Active Substance: CYTARABINE
     Indication: PRIMARY MEDIASTINAL LARGE B-CELL LYMPHOMA
     Dosage: 30 MG, UNK
  24. CYTARABINE. [Suspect]
     Active Substance: CYTARABINE
     Dosage: METHOTREXATE, CYTARABINE AND PREDNISOLONE (12MG+30MG+10MG) ON DAY 1: IN PREPHASE THERAPY, 2 COURS...
     Route: 037
  25. CYTARABINE. [Suspect]
     Active Substance: CYTARABINE
     Dosage: 3 G/M2 IN TWO DOSES (DOSES ARE 12 HOURS APART) FOR 3 HOURS ON DAY 1 AND 2: 2 COURSES OF COURSE CC ()
     Route: 042
  26. LEVOLEUCOVORIN                     /06682101/ [Suspect]
     Active Substance: LEVOLEUCOVORIN
     Indication: PRIMARY MEDIASTINAL LARGE B-CELL LYMPHOMA
     Dosage: RECEIVED 15 MG/M2 AT 42 HOURS AFTER METHOTREXATE ()
     Route: 042
  27. LEVOLEUCOVORIN                     /06682101/ [Suspect]
     Active Substance: LEVOLEUCOVORIN
     Dosage: RECEIVED 7.5 MG/M2 AT 48 AND 54 HOURS AFTER METHOTREXATE ADMINISTRATION. ()
     Route: 042
  28. METHOTREXATE. [Suspect]
     Active Substance: METHOTREXATE
     Dosage: METHOTREXATE, CYTARABINE AND PREDNISOLONE (12MG+30MG+10MG) ON DAY 1: IN PREPHASE THERAPY, 2 COURS...
     Route: 037
  29. DOXORUBICIN [Suspect]
     Active Substance: DOXORUBICIN
     Indication: PRIMARY MEDIASTINAL LARGE B-CELL LYMPHOMA
     Dosage: 30 MG/M2
     Route: 042
  30. ETOPOSIDE. [Suspect]
     Active Substance: ETOPOSIDE
     Dosage: 100 MG/M2 FOR 2 HOURS ON DAY 4 AND 5 (2 COURSES OF COURSE AA AND 2 COURSES OF COURSE CC)
     Route: 042
  31. IFOSFAMIDE. [Suspect]
     Active Substance: IFOSFAMIDE
     Dosage: 800 MG/M2 FOR 1 HOUR ON DAY 1 TO 5: COURSE AA (2 COURSES) ()
     Route: 042
  32. DEXAMETHASONE. [Suspect]
     Active Substance: DEXAMETHASONE
     Dosage: RECEIVED 10 MG/M2 IN 2 COURSES OF COURSE AA AND 3 COURSES OF COURSE BB ON 1 TO 5. ()
     Route: 065
  33. DEXAMETHASONE. [Suspect]
     Active Substance: DEXAMETHASONE
     Dosage: 10 MG/M2 ON DAY 1 AND 2 OF PREPHASE THERAPY (SUBDIVIDED IN 3 DOSES)
     Route: 065
  34. CYTARABINE. [Suspect]
     Active Substance: CYTARABINE
     Dosage: 150 MG/M2 IN TWO DOSES (DOSES ARE 12 HOURS APART) FOR 1 HOUR ON DAY 4 AND 5: 2 COURSES OF COURSE ...
     Route: 042
  35. VINCRISTINE [Suspect]
     Active Substance: VINCRISTINE
     Indication: PRIMARY MEDIASTINAL LARGE B-CELL LYMPHOMA
     Dosage: 1.5 MG/M2, UNK
     Route: 042
  36. CYCLOPHOSPHAMIDE. [Suspect]
     Active Substance: CYCLOPHOSPHAMIDE
     Indication: PRIMARY MEDIASTINAL LARGE B-CELL LYMPHOMA
     Dosage: 200 MG/M2/DAY FOR 1 HOUR ON DAYS 1 AND 2
     Route: 042
  37. METHOTREXATE. [Suspect]
     Active Substance: METHOTREXATE
     Dosage: 12 MG, UNK
     Route: 037
  38. ETOPOSIDE. [Suspect]
     Active Substance: ETOPOSIDE
     Dosage: RECEIVED TWO CYCLES OF R-ICE (RITUXIMAB IFOSFAMIDE, CARBOPLATIN, ETOPOSIDE).
     Route: 042
  39. DEXAMETHASONE. [Suspect]
     Active Substance: DEXAMETHASONE
     Dosage: RECEIVED 20 MG/M2 IN 2 COURSES OF COURSE CC ON DAY 0 TO 5. ()
     Route: 065
  40. DEXAMETHASONE. [Suspect]
     Active Substance: DEXAMETHASONE
     Dosage: RECEIVED 5 MG/M2 AND 10 MG/M2 ON DAY 1 AND 2 OF PREPHASE THERAPY ()
     Route: 065
  41. DEXAMETHASONE. [Suspect]
     Active Substance: DEXAMETHASONE
     Dosage: RECEIVED 20 MG/M2 IN 2 COURSES OF COURSE CC ON DAY 0-5
     Route: 042
  42. CARBOPLATIN. [Suspect]
     Active Substance: CARBOPLATIN
     Indication: PRIMARY MEDIASTINAL LARGE B-CELL LYMPHOMA
     Dosage: UNK
  43. DEXAMETHASONE. [Suspect]
     Active Substance: DEXAMETHASONE
     Dosage: 10 MG/M2, UNK
     Route: 048
  44. RITUXIMAB. [Suspect]
     Active Substance: RITUXIMAB
     Dosage: 375 MG/M2 ON DAY 0: 2 COURSES OF COURSE AA, 3 COURSES OF COURSE BB AND 2 COURSES OF COURSE CC ()
     Route: 065
  45. RITUXIMAB. [Suspect]
     Active Substance: RITUXIMAB
     Dosage: RECEIVED TWO CYCLES OF R-ICE (RITUXIMAB IFOSFAMIDE, CARBOPLATIN, ETOPOSIDE). ()
     Route: 065
  46. PREDNISOLONE. [Suspect]
     Active Substance: PREDNISOLONE
     Dosage: (12MG+30MG+10MG)
  47. PREDNISOLONE. [Suspect]
     Active Substance: PREDNISOLONE
     Dosage: METHOTREXATE, CYTARABINE AND PREDNISOLONE (12MG+30MG+10MG) ON DAY 1: IN PREPHASE THERAPY, 2 COURS...
     Route: 037
  48. METHOTREXATE. [Suspect]
     Active Substance: METHOTREXATE
     Dosage: METHOTREXATE 3 G/M2 (10% OF DOSE GIVEN IN 0.5 HOURS, 90% OF DOSE OVER 23.5 HOURS) ON DAY 1 (2 COU...
     Route: 042
  49. ETOPOSIDE. [Suspect]
     Active Substance: ETOPOSIDE
     Dosage: 100 MG/M2 FOR 2 HOURS ON DAY 4 AND 5 (2 COURSES OF COURSE AA AND 2 COURSES OF COURSE CC) ()
  50. DEXAMETHASONE. [Suspect]
     Active Substance: DEXAMETHASONE
     Dosage: 10 MG/M2, UNK
     Route: 042
  51. DEXAMETHASONE. [Suspect]
     Active Substance: DEXAMETHASONE
     Dosage: RECEIVED 10 MG/M2 IN 2 COURSES OF COURSE AA AND 3 COURSES OF COURSE BB ON 1 TO 5. ()
     Route: 065
  52. CYTARABINE. [Suspect]
     Active Substance: CYTARABINE
     Dosage: 150 MG/M2, UNK
     Route: 042
  53. RITUXIMAB. [Suspect]
     Active Substance: RITUXIMAB
     Dosage: 375 MG/M2 DAILY
  54. CYCLOPHOSPHAMIDE. [Suspect]
     Active Substance: CYCLOPHOSPHAMIDE
     Dosage: 200 MG/M2/DAY FOR 1 HOUR ON DAY 1 AND 2: IN PREPHASE THERAPY ()
     Route: 042
  55. VINDESINE [Suspect]
     Active Substance: VINDESINE
     Dosage: 3 MG/M2 ON DAY 1 (2 COURSES OF COURSE CC) ()
     Route: 042

REACTIONS (2)
  - Dyspnoea [Unknown]
  - Restrictive pulmonary disease [Unknown]
